FAERS Safety Report 18125972 (Version 1)
Quarter: 2020Q3

REPORT INFORMATION
  Report Type: Spontaneous
  Country: CR (occurrence: CR)
  Receive Date: 20200808
  Receipt Date: 20200808
  Transmission Date: 20201103
  Serious: Yes (Other)
  Sender: FDA-Public Use
  Company Number: CR-AMGEN-CRISP2020127617

PATIENT
  Age: 59 Year
  Sex: Female

DRUGS (1)
  1. ENBREL [Suspect]
     Active Substance: ETANERCEPT
     Indication: PRODUCT USED FOR UNKNOWN INDICATION
     Dosage: UNK
     Route: 065
     Dates: start: 202007

REACTIONS (7)
  - Tracheal obstruction [Unknown]
  - Injection site pruritus [Unknown]
  - Pharyngeal inflammation [Unknown]
  - Nasopharyngitis [Unknown]
  - Dysphagia [Unknown]
  - Injection site inflammation [Unknown]
  - Injection site erythema [Unknown]
